FAERS Safety Report 10538208 (Version 1)
Quarter: 2014Q4

REPORT INFORMATION
  Report Type: Spontaneous
  Country: US (occurrence: US)
  Receive Date: 20141023
  Receipt Date: 20141023
  Transmission Date: 20150529
  Serious: No
  Sender: FDA-Public Use
  Company Number: US-BAUSCH-BL-2014-000963

PATIENT
  Age: 44 Year
  Sex: Male

DRUGS (1)
  1. NEOMYCIN AND POLYMYXIN B SULFATES AND HYDROCORTISONE [Suspect]
     Active Substance: HYDROCORTISONE\NEOMYCIN SULFATE\POLYMYXIN B SULFATE
     Indication: EAR INFECTION
     Dosage: 3 DROPS IN THE LEFT EAR
     Route: 001
     Dates: start: 20140121, end: 201401

REACTIONS (1)
  - Medication residue present [Unknown]

NARRATIVE: CASE EVENT DATE: 20140204
